FAERS Safety Report 15449606 (Version 8)
Quarter: 2019Q2

REPORT INFORMATION
  Report Type: Spontaneous
  Country: CA (occurrence: CA)
  Receive Date: 20181001
  Receipt Date: 20190620
  Transmission Date: 20190711
  Serious: Yes (Other)
  Sender: FDA-Public Use
  Company Number: CA-CELLTRION INC.-2018CA022688

PATIENT

DRUGS (14)
  1. INFLECTRA [Suspect]
     Active Substance: INFLIXIMAB-DYYB
     Dosage: 500 MG, 0,2,6 WEEKS, THEN EVERY 8 WEEKS
     Route: 042
     Dates: start: 20181015
  2. MEZAVANT [Concomitant]
     Active Substance: MESALAMINE
     Indication: COLITIS ULCERATIVE
     Dosage: 4.8 G, DAILY
     Route: 065
     Dates: start: 2016
  3. 5-ASA [Concomitant]
     Active Substance: MESALAMINE
     Dosage: UNK
     Route: 065
  4. INFLECTRA [Suspect]
     Active Substance: INFLIXIMAB-DYYB
     Dosage: 500 MG, 0,2,6 WEEKS, THEN EVERY 8 WEEKS
     Route: 042
     Dates: start: 20190219
  5. ATIVAN [Concomitant]
     Active Substance: LORAZEPAM
     Dosage: UNK UNK, AS NEEDED
  6. SERTRALINE [Concomitant]
     Active Substance: SERTRALINE HYDROCHLORIDE
     Dosage: UNK
     Route: 065
  7. INFLECTRA [Suspect]
     Active Substance: INFLIXIMAB-DYYB
     Indication: COLITIS ULCERATIVE
     Dosage: 500 MG, 0, 2, 6, THEN EVERY 8 WEEKS
     Route: 042
     Dates: start: 20180905
  8. MEZAVANT [Concomitant]
     Active Substance: MESALAMINE
     Dosage: 4.3 G, DAILY
     Route: 065
  9. IRON SUPPLEMENT WITH VIT C + HERBS [Concomitant]
     Active Substance: IRON\VITAMINS
     Dosage: UNK
     Route: 065
  10. INFLECTRA [Suspect]
     Active Substance: INFLIXIMAB-DYYB
     Dosage: 500 MG, 0,2,6 WEEKS, THEN EVERY 8 WEEKS
     Route: 042
     Dates: start: 20190606
  11. PREVACID [Concomitant]
     Active Substance: LANSOPRAZOLE
     Indication: COLITIS ULCERATIVE
     Dosage: 30 MG, DAILY
     Route: 065
     Dates: start: 2016
  12. INFLECTRA [Suspect]
     Active Substance: INFLIXIMAB-DYYB
     Dosage: 500 MG, 0,2,6 WEEKS, THEN EVERY 8 WEEKS
     Route: 042
     Dates: start: 20181210
  13. INFLECTRA [Suspect]
     Active Substance: INFLIXIMAB-DYYB
     Dosage: 500 MG, 0,2,6 WEEKS, THEN EVERY 8 WEEKS
     Route: 042
     Dates: start: 20190415
  14. INFLECTRA [Suspect]
     Active Substance: INFLIXIMAB-DYYB
     Dosage: 500  0, 2, 6, THEN EVERY 8 WEEKS
     Route: 042
     Dates: start: 20180919

REACTIONS (15)
  - Fatigue [Not Recovered/Not Resolved]
  - Arthritis [Unknown]
  - Dysphagia [Unknown]
  - Joint swelling [Not Recovered/Not Resolved]
  - Oropharyngeal pain [Not Recovered/Not Resolved]
  - Asthenia [Unknown]
  - Condition aggravated [Recovering/Resolving]
  - Gastric disorder [Unknown]
  - Haematochezia [Unknown]
  - Hepatic steatosis [Unknown]
  - Headache [Not Recovered/Not Resolved]
  - Pain [Unknown]
  - Viral infection [Unknown]
  - Off label use [Unknown]
  - Back pain [Unknown]

NARRATIVE: CASE EVENT DATE: 20180905
